FAERS Safety Report 16958247 (Version 1)
Quarter: 2019Q4

REPORT INFORMATION
  Report Type: Spontaneous
  Country: PT (occurrence: PT)
  Receive Date: 20191024
  Receipt Date: 20191024
  Transmission Date: 20200122
  Serious: Yes (Hospitalization, Other)
  Sender: FDA-Public Use
  Company Number: PT-BAUSCH-BL-2019-057983

PATIENT
  Age: 44 Year
  Sex: Male

DRUGS (11)
  1. PREDNISOLONE. [Suspect]
     Active Substance: PREDNISOLONE
     Indication: PRIMARY ADRENAL INSUFFICIENCY
  2. VINCRISTINE [Suspect]
     Active Substance: VINCRISTINE
     Indication: PRIMARY ADRENAL INSUFFICIENCY
  3. PIPERACILLIN/TAZOBACTAM [Concomitant]
     Active Substance: PIPERACILLIN SODIUM\TAZOBACTAM SODIUM
     Indication: INFECTION PROPHYLAXIS
  4. HYDROXYDOXORUBICIN [Suspect]
     Active Substance: HYDROXYDOXORUBICIN
     Indication: PRIMARY ADRENAL INSUFFICIENCY
  5. RASBURICASE [Concomitant]
     Active Substance: RASBURICASE
     Indication: PRODUCT USED FOR UNKNOWN INDICATION
  6. CYCLOPHOSPHAMIDE. [Suspect]
     Active Substance: CYCLOPHOSPHAMIDE
     Indication: T-CELL LYMPHOMA
     Dosage: ONE CYCLE
     Route: 065
  7. HYDROXYDOXORUBICIN [Suspect]
     Active Substance: HYDROXYDOXORUBICIN
     Indication: T-CELL LYMPHOMA
     Dosage: ONE CYCLE
     Route: 065
  8. VINCRISTINE [Suspect]
     Active Substance: VINCRISTINE
     Indication: T-CELL LYMPHOMA
     Dosage: ONE CYCLE
     Route: 065
  9. PREDNISOLONE. [Suspect]
     Active Substance: PREDNISOLONE
     Indication: T-CELL LYMPHOMA
     Dosage: ONE CYCLE
     Route: 065
  10. CYCLOPHOSPHAMIDE. [Suspect]
     Active Substance: CYCLOPHOSPHAMIDE
     Indication: PRIMARY ADRENAL INSUFFICIENCY
  11. DEXAMETHASONE. [Concomitant]
     Active Substance: DEXAMETHASONE
     Indication: ADRENAL INSUFFICIENCY
     Route: 042

REACTIONS (4)
  - Nosocomial infection [Unknown]
  - Respiratory tract infection [Unknown]
  - Multiple organ dysfunction syndrome [Unknown]
  - Shock [Unknown]
